FAERS Safety Report 15281005 (Version 1)
Quarter: 2018Q3

REPORT INFORMATION
  Report Type: Spontaneous
  Country: GB (occurrence: GB)
  Receive Date: 20180815
  Receipt Date: 20180815
  Transmission Date: 20181010
  Serious: Yes (Hospitalization)
  Sender: FDA-Public Use
  Company Number: GB-PFIZER INC-2018322696

PATIENT
  Age: 16 Year
  Sex: Male
  Weight: 50.5 kg

DRUGS (1)
  1. SULFASALAZINE. [Suspect]
     Active Substance: SULFASALAZINE
     Indication: JUVENILE IDIOPATHIC ARTHRITIS
     Dosage: 2000 MG, 1X/DAY
     Route: 048
     Dates: start: 20180510, end: 20180616

REACTIONS (12)
  - Skin exfoliation [Unknown]
  - Eosinophilia [Recovering/Resolving]
  - Erythema [Unknown]
  - Lymphadenopathy [Recovering/Resolving]
  - Swelling face [Recovering/Resolving]
  - Drug reaction with eosinophilia and systemic symptoms [Recovered/Resolved]
  - Transaminases increased [Recovered/Resolved]
  - Purpura [Recovering/Resolving]
  - Hypersensitivity [Unknown]
  - Eczema [Unknown]
  - Rash maculo-papular [Recovering/Resolving]
  - Post inflammatory pigmentation change [Unknown]

NARRATIVE: CASE EVENT DATE: 201806
